FAERS Safety Report 5866519-1 (Version None)
Quarter: 2008Q3

REPORT INFORMATION
  Report Type: 
  Country: None (occurrence: None)
  Receive Date: 20080902
  Receipt Date: 20080902
  Transmission Date: 20090109
  Serious: Yes (Hospitalization)
  Sender: FDA-Public Use
  Company Number: PHEH1995US03661

PATIENT
  Sex: Female
  Weight: 65.9 kg

DRUGS (17)
  1. NEORAL [Suspect]
     Route: 048
     Dates: start: 19950308
  2. ACYCLOVIR [Concomitant]
  3. BACTRIM DS [Concomitant]
  4. MYCELEX [Concomitant]
  5. ZANTAC [Concomitant]
  6. MAGNESIUM OXIDE [Concomitant]
  7. CLONIDINE TIS (CLONIDINE) [Concomitant]
  8. PREDNISONE TAB [Concomitant]
  9. HALCION [Concomitant]
  10. CA CO2 (CALCIUM CARBONATE) [Concomitant]
  11. RACALTROL (CALCITRIOL) [Concomitant]
  12. GANCICLOVER (GANCICLOVIR) [Concomitant]
  13. PREMARIN [Concomitant]
  14. PROVERA [Concomitant]
  15. GCSF (GRANULOCYTE COLONY STIMULATING FACTOR) [Concomitant]
  16. MORPHINE SULFATE [Concomitant]
  17. PEPCID [Concomitant]

REACTIONS (8)
  - ANAEMIA MEGALOBLASTIC [None]
  - BONE MARROW FAILURE [None]
  - FRACTURE [None]
  - HEPATITIS [None]
  - PATHOLOGICAL FRACTURE [None]
  - PERITONITIS [None]
  - SPLENOMEGALY [None]
  - THROMBOCYTOPENIA [None]
